FAERS Safety Report 5788361-2 (Version None)
Quarter: 2008Q2

REPORT INFORMATION
  Report Type: 
  Country: None (occurrence: None)
  Receive Date: 20080625
  Receipt Date: 20080613
  Transmission Date: 20081010
  Serious: Yes (Disabling)
  Sender: FDA-Public Use
  Company Number: GB-PFIZER INC-2008050592

PATIENT
  Age: 64 Year
  Sex: Female

DRUGS (2)
  1. EXEMESTANE [Suspect]
     Indication: BREAST CANCER
     Route: 048
     Dates: start: 20080108, end: 20080328
  2. TAMOXIFEN CITRATE [Concomitant]
     Indication: BREAST CANCER
     Route: 048
     Dates: start: 20050801, end: 20080101

REACTIONS (3)
  - DERMATITIS EXFOLIATIVE [None]
  - DYSPNOEA [None]
  - MALAISE [None]
